FAERS Safety Report 13610929 (Version 1)
Quarter: 2017Q2

REPORT INFORMATION
  Report Type: Spontaneous
  Country: US (occurrence: US)
  Receive Date: 20170604
  Receipt Date: 20170604
  Transmission Date: 20170830
  Serious: No
  Sender: FDA-Public Use
  Company Number: None

PATIENT
  Sex: Female

DRUGS (1)
  1. STIVARGA [Suspect]
     Active Substance: REGORAFENIB
     Indication: PRODUCT USED FOR UNKNOWN INDICATION
     Route: 048
     Dates: start: 20161103

REACTIONS (11)
  - Muscle spasms [None]
  - Flatulence [None]
  - Epistaxis [None]
  - Musculoskeletal stiffness [None]
  - Alopecia [None]
  - Neuropathy peripheral [None]
  - Fatigue [None]
  - Limb discomfort [None]
  - Dry skin [None]
  - Pain in jaw [None]
  - Unevaluable event [None]
